FAERS Safety Report 21614671 (Version 1)
Quarter: 2022Q4

REPORT INFORMATION
  Report Type: Spontaneous
  Country: US (occurrence: US)
  Receive Date: 20221118
  Receipt Date: 20221118
  Transmission Date: 20230113
  Serious: Yes (Other)
  Sender: FDA-Public Use
  Company Number: None

PATIENT
  Age: 16 Year
  Sex: Male
  Weight: 88 kg

DRUGS (28)
  1. DEXMEDETOMIDINE [Suspect]
     Active Substance: DEXMEDETOMIDINE
     Indication: General anaesthesia
     Dosage: TOTALING 32 MCG, 0.3 MCG/KG/HR DURING 2ND HOUR
     Route: 065
  2. DEXMEDETOMIDINE [Suspect]
     Active Substance: DEXMEDETOMIDINE
     Dosage: 0.3 MCG/KG/HR DURING 3RD HOUR
     Route: 065
  3. DEXMEDETOMIDINE [Suspect]
     Active Substance: DEXMEDETOMIDINE
     Dosage: 0.2 MCG/KG/HR DURING 4TH HOUR
     Route: 065
  4. PROPOFOL [Concomitant]
     Active Substance: PROPOFOL
     Indication: General anaesthesia
     Dosage: 150 TO 175 MCG/KG/MIN
     Route: 065
  5. PROPOFOL [Concomitant]
     Active Substance: PROPOFOL
     Dosage: 150 TO175 MCG/KG/MIN
     Route: 065
  6. PROPOFOL [Concomitant]
     Active Substance: PROPOFOL
     Dosage: 150 MCG/KG/MIN
     Route: 065
  7. PROPOFOL [Concomitant]
     Active Substance: PROPOFOL
     Dosage: 80 TO150 MCG/KG/MIN
     Route: 065
  8. PROPOFOL [Concomitant]
     Active Substance: PROPOFOL
     Route: 065
  9. PROPOFOL [Concomitant]
     Active Substance: PROPOFOL
     Route: 065
  10. SEVOFLURANE [Concomitant]
     Active Substance: SEVOFLURANE
     Indication: General anaesthesia
     Dosage: 0.2-0.6, MINIMUM ALVEOLAR CONCENTRATION
     Route: 065
  11. SEVOFLURANE [Concomitant]
     Active Substance: SEVOFLURANE
     Dosage: 0.4 TO 0.5, MINIMUM ALVEOLAR CONCENTRATION
     Route: 065
  12. SEVOFLURANE [Concomitant]
     Active Substance: SEVOFLURANE
     Dosage: 0.2 TO 0.3, MINIMUM ALVEOLAR CONCENTRATION
     Route: 065
  13. SEVOFLURANE [Concomitant]
     Active Substance: SEVOFLURANE
     Dosage: 0.1, MINIMUM ALVEOLAR CONCENTRATION
     Route: 065
  14. SEVOFLURANE [Concomitant]
     Active Substance: SEVOFLURANE
     Dosage: 0.3 TO 0.5, MINIMUM ALVEOLAR CONCENTRATION
     Route: 065
  15. SEVOFLURANE [Concomitant]
     Active Substance: SEVOFLURANE
     Dosage: 0.5 TO 0.6, MINIMUM ALVEOLAR CONCENTRATION
     Route: 065
  16. SEVOFLURANE [Concomitant]
     Active Substance: SEVOFLURANE
     Dosage: 0.6 TO 0.8, MINIMUM ALVEOLAR CONCENTRATION
     Route: 065
  17. SEVOFLURANE [Concomitant]
     Active Substance: SEVOFLURANE
     Dosage: 0.2 TO 0.7, MINIMUM ALVEOLAR CONCENTRATION
     Route: 065
  18. MIDAZOLAM [Concomitant]
     Active Substance: MIDAZOLAM
     Indication: General anaesthesia
     Route: 065
  19. ROCURONIUM [Concomitant]
     Active Substance: ROCURONIUM BROMIDE
     Indication: General anaesthesia
     Route: 065
  20. ROCURONIUM [Concomitant]
     Active Substance: ROCURONIUM BROMIDE
     Route: 065
  21. FENTANYL [Concomitant]
     Active Substance: FENTANYL
     Indication: General anaesthesia
     Dosage: 50 MCG
     Route: 065
  22. FENTANYL [Concomitant]
     Active Substance: FENTANYL
     Dosage: 50 MCG
     Route: 065
  23. LIDOCAINE [Concomitant]
     Active Substance: LIDOCAINE
     Indication: General anaesthesia
     Dosage: 1 PERCENT
     Route: 065
  24. REMIFENTANIL [Concomitant]
     Active Substance: REMIFENTANIL
     Indication: General anaesthesia
     Dosage: 0.2 MC/KG/HR
     Route: 065
  25. REMIFENTANIL [Concomitant]
     Active Substance: REMIFENTANIL
     Dosage: 0.25 TO 0.3 MC/KG/HR
     Route: 065
  26. REMIFENTANIL [Concomitant]
     Active Substance: REMIFENTANIL
     Dosage: 0.3 MC/KG/HR
     Route: 065
  27. SODIUM CHLORIDE [Concomitant]
     Active Substance: SODIUM CHLORIDE
     Indication: Product used for unknown indication
     Route: 065
  28. SODIUM CHLORIDE [Concomitant]
     Active Substance: SODIUM CHLORIDE
     Route: 065

REACTIONS (1)
  - Diabetes insipidus [Unknown]
